FAERS Safety Report 8849017 (Version 1)
Quarter: 2012Q4

REPORT INFORMATION
  Report Type: Spontaneous
  Country: US (occurrence: None)
  Receive Date: 20121017
  Receipt Date: 20121017
  Transmission Date: 20130627
  Serious: No
  Sender: FDA-Public Use
  Company Number: None

PATIENT
  Age: 61 Year
  Sex: Female
  Weight: 68 kg

DRUGS (3)
  1. SUMATRIPTAN SUCCINATE [Suspect]
     Indication: MIGRAINE
     Dates: start: 2008, end: 2009
  2. ANINDEROL [Concomitant]
  3. ELAVIL [Concomitant]

REACTIONS (3)
  - Headache [None]
  - Drug ineffective [None]
  - Product substitution issue [None]
